FAERS Safety Report 15674927 (Version 1)
Quarter: 2018Q4

REPORT INFORMATION
  Report Type: Spontaneous
  Country: US (occurrence: US)
  Receive Date: 20181129
  Receipt Date: 20181129
  Transmission Date: 20190205
  Serious: Yes (Other)
  Sender: FDA-Public Use
  Company Number: None

PATIENT
  Age: 73 Year
  Sex: Female
  Weight: 63.9 kg

DRUGS (1)
  1. EYLEA [Suspect]
     Active Substance: AFLIBERCEPT
     Indication: RETINAL VASCULAR THROMBOSIS
     Dosage: ?          QUANTITY:2 INJECTION(S);OTHER FREQUENCY:2 INJECTIONS;?
     Route: 047
     Dates: start: 20180910, end: 20181022

REACTIONS (4)
  - Urticaria [None]
  - Rash [None]
  - Pruritus [None]
  - Muscle spasms [None]

NARRATIVE: CASE EVENT DATE: 20181025
